FAERS Safety Report 10784103 (Version 2)
Quarter: 2015Q2

REPORT INFORMATION
  Report Type: Spontaneous
  Country: US (occurrence: US)
  Receive Date: 20150211
  Receipt Date: 20150416
  Transmission Date: 20150821
  Serious: No
  Sender: FDA-Public Use
  Company Number: US-009507513-1502USA004610

PATIENT

DRUGS (2)
  1. PROVENTIL [Suspect]
     Active Substance: ALBUTEROL
     Dosage: 90 MCG/ACT 6.8GM, 1 PUFF ONCE EVERY SIX HOURS
     Route: 055
  2. PROVENTIL [Suspect]
     Active Substance: ALBUTEROL
     Dosage: PATIENT SOMETIMES TOOK THIS DRUG MORE THAN ONE PUFF EVERY SIX HOURS
     Route: 055

REACTIONS (5)
  - Incorrect dose administered [Unknown]
  - No adverse event [Unknown]
  - Underdose [Unknown]
  - Product quality issue [Unknown]
  - Drug dose omission [Unknown]
